FAERS Safety Report 5010784-X (Version None)
Quarter: 2006Q2

REPORT INFORMATION
  Report Type: 
  Country: None (occurrence: None)
  Receive Date: 20060525
  Receipt Date: 20060519
  Transmission Date: 20061013
  Serious: Yes (Death)
  Sender: FDA-Public Use
  Company Number: CH-AVENTIS-200615435GDDC

PATIENT
  Age: 48 Year
  Sex: Male

DRUGS (2)
  1. TAXOTERE [Suspect]
     Indication: OESOPHAGEAL CARCINOMA
     Route: 042
     Dates: start: 20051216
  2. CISPLATIN [Suspect]
     Indication: OESOPHAGEAL CARCINOMA
     Route: 042
     Dates: start: 20051216

REACTIONS (2)
  - HAEMORRHAGE [None]
  - SUTURE RELATED COMPLICATION [None]
